FAERS Safety Report 8920533 (Version 1)
Quarter: 2012Q4

REPORT INFORMATION
  Report Type: 
  Country: DE (occurrence: NO)
  Receive Date: 20121122
  Receipt Date: 20121122
  Transmission Date: 20130627
  Serious: Yes (Death)
  Sender: FDA-Public Use
  Company Number: NO-BRISTOL-MYERS SQUIBB COMPANY-17138785

PATIENT
  Age: 81 Year
  Sex: Male

DRUGS (8)
  1. GLUCOPHAGE [Suspect]
     Dosage: 1DF:500 units nos
     Route: 048
  2. AMARYL [Concomitant]
  3. LIPITOR [Concomitant]
  4. CITALOPRAM [Concomitant]
  5. ALBYL [Concomitant]
  6. NEXIUM [Concomitant]
  7. ATROVENT [Concomitant]
  8. VENTOLINE [Concomitant]

REACTIONS (3)
  - Renal failure acute [Fatal]
  - Lactic acidosis [Fatal]
  - Overdose [Fatal]
